FAERS Safety Report 9322499 (Version 1)
Quarter: 2013Q2

REPORT INFORMATION
  Report Type: Spontaneous
  Country: IT (occurrence: IT)
  Receive Date: 20130531
  Receipt Date: 20130531
  Transmission Date: 20140414
  Serious: Yes (Hospitalization)
  Sender: FDA-Public Use
  Company Number: PHHY2013IT054300

PATIENT
  Sex: Female

DRUGS (4)
  1. ALPRAZOLAM [Suspect]
     Indication: SUICIDE ATTEMPT
     Dosage: UNK UKN, UNK
  2. ALPRAZOLAM [Suspect]
     Indication: DEPRESSION
     Dosage: 5 MG, ONCE/SINGLE
     Route: 048
     Dates: start: 20130125, end: 20130125
  3. PAROXETIN MYLAN [Suspect]
     Indication: SUICIDE ATTEMPT
     Dosage: UNK UKN, UNK
  4. PAROXETIN MYLAN [Suspect]
     Indication: DEPRESSION
     Dosage: 1120 MG, ONCE/SINGLE
     Route: 048
     Dates: start: 20130125, end: 20130125

REACTIONS (3)
  - Sopor [Recovering/Resolving]
  - Tremor [Recovering/Resolving]
  - Nausea [Recovering/Resolving]
